FAERS Safety Report 10516947 (Version 1)
Quarter: 2014Q4

REPORT INFORMATION
  Report Type: Spontaneous
  Country: IT (occurrence: IT)
  Receive Date: 20141014
  Receipt Date: 20141014
  Transmission Date: 20150528
  Serious: Yes (Hospitalization)
  Sender: FDA-Public Use
  Company Number: IT-BAYER-2014-150510

PATIENT
  Age: 58 Year
  Sex: Female

DRUGS (3)
  1. ASPIRINA [Suspect]
     Active Substance: ASPIRIN
     Indication: DRUG ABUSE
     Dosage: 2000 MG, ONCE
     Route: 048
     Dates: start: 20140902, end: 20140902
  2. OLMESARTAN MEDOXOMIL. [Suspect]
     Active Substance: OLMESARTAN MEDOXOMIL
     Indication: DRUG ABUSE
     Dosage: 100 MG, ONCE
     Dates: start: 20140902, end: 20140902
  3. ZYPREXA [Concomitant]
     Active Substance: OLANZAPINE
     Dosage: 5 MG, DAILY DOSE
     Route: 048

REACTIONS (3)
  - Vertigo [Recovered/Resolved]
  - Drug abuse [Recovered/Resolved]
  - Restlessness [Recovered/Resolved]

NARRATIVE: CASE EVENT DATE: 20140902
